FAERS Safety Report 5363675-9 (Version None)
Quarter: 2007Q2

REPORT INFORMATION
  Report Type: 
  Country: None (occurrence: None)
  Receive Date: 20070618
  Receipt Date: 20070618
  Transmission Date: 20071010
  Serious: Yes (Life-Threatening)
  Sender: FDA-Public Use
  Company Number: None

PATIENT
  Age: 91 Year
  Sex: Female
  Weight: 27.2158 kg

DRUGS (1)
  1. PAROXETINE [Suspect]
     Indication: WEIGHT CONTROL
     Dosage: 90 1 TABLET AT BEDTIM
     Dates: start: 20070612, end: 20070612

REACTIONS (7)
  - ANXIETY [None]
  - DIARRHOEA [None]
  - DIZZINESS [None]
  - FLATULENCE [None]
  - HYPERHIDROSIS [None]
  - LOSS OF CONSCIOUSNESS [None]
  - WEIGHT DECREASED [None]
